FAERS Safety Report 16574560 (Version 1)
Quarter: 2019Q3

REPORT INFORMATION
  Report Type: Spontaneous
  Country: US (occurrence: US)
  Receive Date: 20190715
  Receipt Date: 20190715
  Transmission Date: 20191004
  Serious: No
  Sender: FDA-Public Use
  Company Number: US-NOVOPROD-640416

PATIENT
  Sex: Male

DRUGS (1)
  1. OZEMPIC [Suspect]
     Active Substance: SEMAGLUTIDE
     Indication: TYPE 2 DIABETES MELLITUS
     Dosage: 0.25 MG, UNK
     Route: 058

REACTIONS (6)
  - Constipation [Unknown]
  - Headache [Unknown]
  - Asthenia [Unknown]
  - Abdominal distension [Unknown]
  - Nausea [Unknown]
  - Diarrhoea [Unknown]
